FAERS Safety Report 7236189-9 (Version None)
Quarter: 2011Q1

REPORT INFORMATION
  Report Type: 
  Country: None (occurrence: None)
  Receive Date: 20110120
  Receipt Date: 20110110
  Transmission Date: 20110831
  Serious: Yes (Other)
  Sender: FDA-Public Use
  Company Number: NL-AMGEN-NLDSP2011001580

PATIENT

DRUGS (2)
  1. MIMPARA [Suspect]
     Indication: HYPERCALCAEMIA
     Dosage: 90 MG, Q12H
     Dates: start: 20050401
  2. CLODRONATE DISOD. [Concomitant]
     Indication: BONE DENSITY DECREASED

REACTIONS (7)
  - RENAL IMPAIRMENT [None]
  - SCAR [None]
  - HUNGRY BONE SYNDROME [None]
  - THERAPEUTIC RESPONSE DECREASED [None]
  - METASTASES TO THE MEDIASTINUM [None]
  - IMMUNE SYSTEM DISORDER [None]
  - INFECTION [None]
